FAERS Safety Report 10309340 (Version 1)
Quarter: 2014Q3

REPORT INFORMATION
  Report Type: Spontaneous
  Country: US (occurrence: None)
  Receive Date: 20140714
  Receipt Date: 20140714
  Transmission Date: 20150326
  Serious: Yes (Hospitalization)
  Sender: FDA-Public Use
  Company Number: US-ZYDUS-004009

PATIENT
  Age: 15 Year
  Sex: Female

DRUGS (6)
  1. GUANFACINE. [Suspect]
     Active Substance: GUANFACINE
     Dosage: 2.00-MG-1.0DAYS
  2. TRAZODONE [Concomitant]
     Active Substance: TRAZODONE HYDROCHLORIDE
  3. CHLORPROMAZINE (CHLORPROMAZINE) [Concomitant]
     Active Substance: CHLORPROMAZINE
  4. LAMOTRIGINE. [Suspect]
     Active Substance: LAMOTRIGINE
     Dosage: 25.00-MG-1.0DAYS
  5. LITHIUM [Concomitant]
     Active Substance: LITHIUM CARBONATE
  6. OXCARBAZEPINE (OXCARBAZEPINE) [Concomitant]

REACTIONS (2)
  - Thrombocytopenia [None]
  - Aggression [None]
